FAERS Safety Report 5983278-2 (Version None)
Quarter: 2008Q4

REPORT INFORMATION
  Report Type: 
  Country: None (occurrence: None)
  Receive Date: 20081208
  Receipt Date: 20080514
  Transmission Date: 20090506
  Serious: No
  Sender: FDA-Public Use
  Company Number: US-BAYER-200812266BCC

PATIENT
  Sex: Male
  Weight: 104 kg

DRUGS (6)
  1. ALEVE-D SINUS + COLD [Suspect]
     Indication: NASAL CONGESTION
     Dosage: TOTAL DAILY DOSE: 220 MG  UNIT DOSE: 220 MG
     Route: 048
  2. ATENOLOL [Concomitant]
     Route: 065
  3. QUINAPRIL [Concomitant]
     Route: 065
  4. RANITIDINE [Concomitant]
     Route: 065
  5. ASPIRIN [Concomitant]
     Route: 048
  6. ASPIRIN [Concomitant]
     Route: 048

REACTIONS (1)
  - INSOMNIA [None]
